FAERS Safety Report 23179444 (Version 1)
Quarter: 2023Q4

REPORT INFORMATION
  Report Type: Spontaneous
  Country: US (occurrence: US)
  Receive Date: 20231113
  Receipt Date: 20231113
  Transmission Date: 20240110
  Serious: No
  Sender: FDA-Public Use
  Company Number: US-AMGEN-USASP2023200829

PATIENT
  Age: 9 Year
  Sex: Female

DRUGS (4)
  1. BEVACIZUMAB [Suspect]
     Active Substance: BEVACIZUMAB
     Indication: Macular oedema
     Dosage: 1.25 MILLIGRAM PER 0.05 MILLITRE
     Dates: start: 20190912
  2. BEVACIZUMAB [Suspect]
     Active Substance: BEVACIZUMAB
     Dosage: 1.25 MILLIGRAM PER 0.05 MILLITRE
     Dates: start: 20200422
  3. BEVACIZUMAB [Suspect]
     Active Substance: BEVACIZUMAB
     Dosage: 1.25 MILLIGRAM PER 0.05 MILLITRE
     Dates: start: 20201029
  4. BEVACIZUMAB [Suspect]
     Active Substance: BEVACIZUMAB
     Dosage: 1.25 MILLIGRAM PER 0.05 MILLITRE
     Dates: start: 20210513

REACTIONS (2)
  - Drug effective for unapproved indication [Unknown]
  - Off label use [Unknown]
